FAERS Safety Report 8483199-X (Version None)
Quarter: 2012Q3

REPORT INFORMATION
  Report Type: 
  Country: None (occurrence: None)
  Receive Date: 20120702
  Receipt Date: 20120625
  Transmission Date: 20120928
  Serious: Yes (Hospitalization)
  Sender: FDA-Public Use
  Company Number: US-BRACCO-008237

PATIENT
  Sex: Male

DRUGS (3)
  1. ISOVUE-M 200 [Suspect]
     Indication: SPINAL PAIN
     Route: 037
     Dates: start: 20120622, end: 20120622
  2. ISOVUE-M 200 [Suspect]
     Indication: SPINAL MYELOGRAM
     Route: 037
     Dates: start: 20120622, end: 20120622
  3. ISOVUE-M 200 [Suspect]
     Indication: ARTHRALGIA
     Route: 037
     Dates: start: 20120622, end: 20120622

REACTIONS (11)
  - NEUROTOXICITY [None]
  - DEPRESSED LEVEL OF CONSCIOUSNESS [None]
  - HYPERHIDROSIS [None]
  - HEADACHE [None]
  - HYDROCEPHALUS [None]
  - VOMITING [None]
  - BODY TEMPERATURE INCREASED [None]
  - MIOSIS [None]
  - HYPERTENSION [None]
  - LETHARGY [None]
  - BRAIN OEDEMA [None]
